FAERS Safety Report 10113576 (Version 2)
Quarter: 2015Q1

REPORT INFORMATION
  Report Type: Other
  Country: US (occurrence: US)
  Receive Date: 20140425
  Receipt Date: 20150109
  Transmission Date: 20150720
  Serious: Yes (Hospitalization, Other)
  Sender: FDA-Public Use
  Company Number: US-GSKPPD-2014GSK014252

PATIENT
  Age: 64 Year
  Sex: Female

DRUGS (6)
  1. AVANDIA [Suspect]
     Active Substance: ROSIGLITAZONE MALEATE
     Indication: DIABETES MELLITUS
     Dosage: DATES OF AVANDIA USE COULD NOT BE CONFIRMED IN RECORDS REVIEWED.
     Route: 048
  2. ASPIRIN. [Concomitant]
     Active Substance: ASPIRIN
  3. IMDUR [Concomitant]
     Active Substance: ISOSORBIDE MONONITRATE
  4. LASIX [Concomitant]
     Active Substance: FUROSEMIDE
  5. TENORMIN [Concomitant]
     Active Substance: ATENOLOL
  6. ZESTRIL [Concomitant]
     Active Substance: LISINOPRIL

REACTIONS (5)
  - Coronary artery disease [Recovered/Resolved]
  - Myocardial infarction [Unknown]
  - Cardiac failure congestive [Unknown]
  - Cardiomegaly [Recovered/Resolved]
  - Angina pectoris [Recovered/Resolved]

NARRATIVE: CASE EVENT DATE: 20051209
